FAERS Safety Report 10771971 (Version 1)
Quarter: 2015Q1

REPORT INFORMATION
  Report Type: Spontaneous
  Country: US (occurrence: US)
  Receive Date: 20150206
  Receipt Date: 20150206
  Transmission Date: 20150721
  Serious: Yes (Other)
  Sender: FDA-Public Use
  Company Number: US-ELI_LILLY_AND_COMPANY-US201501010191

PATIENT
  Sex: Female

DRUGS (5)
  1. VITAMIN E                          /00110501/ [Concomitant]
  2. INSULIN HUMAN [Suspect]
     Active Substance: INSULIN HUMAN
     Indication: TYPE 1 DIABETES MELLITUS
     Dosage: UNK
     Route: 065
     Dates: start: 1948
  3. VITAMIN B [Concomitant]
     Active Substance: VITAMIN B
  4. HUMULIN N [Suspect]
     Active Substance: INSULIN HUMAN
     Indication: TYPE 1 DIABETES MELLITUS
     Dosage: UNK
     Route: 065
     Dates: start: 1948
  5. SYNTHROID [Concomitant]
     Active Substance: LEVOTHYROXINE SODIUM
     Dosage: 112 UG, UNKNOWN

REACTIONS (11)
  - Back pain [Unknown]
  - Drug effect increased [Unknown]
  - Nephrolithiasis [Recovered/Resolved]
  - Monoclonal gammopathy [Not Recovered/Not Resolved]
  - Oesophageal neoplasm [Recovered/Resolved]
  - Dyspnoea [Unknown]
  - Hunger [Unknown]
  - Diabetes mellitus inadequate control [Unknown]
  - Proteinuria [Unknown]
  - Renal disorder [Unknown]
  - Blood glucose decreased [Unknown]

NARRATIVE: CASE EVENT DATE: 2013
